FAERS Safety Report 7827460-8 (Version None)
Quarter: 2011Q4

REPORT INFORMATION
  Report Type: 
  Country: None (occurrence: None)
  Receive Date: 20111020
  Receipt Date: 20111007
  Transmission Date: 20120403
  Serious: Yes (Hospitalization)
  Sender: FDA-Public Use
  Company Number: JP-PERRIGO-11JP008614

PATIENT
  Age: 27 Year
  Sex: Female

DRUGS (1)
  1. MESALAMINE [Suspect]
     Indication: COLITIS ULCERATIVE
     Dosage: UNK
     Route: 065

REACTIONS (6)
  - PYREXIA [None]
  - PLEURAL EFFUSION [None]
  - BACK PAIN [None]
  - PLEURISY [None]
  - CARDIOMEGALY [None]
  - HYPERSENSITIVITY [None]
